FAERS Safety Report 8371933-9 (Version None)
Quarter: 2012Q2

REPORT INFORMATION
  Report Type: 
  Country: None (occurrence: None)
  Receive Date: 20120518
  Receipt Date: 20120515
  Transmission Date: 20120825
  Serious: Yes (Life-Threatening)
  Sender: FDA-Public Use
  Company Number: TR-MERCK-1204USA00087

PATIENT
  Age: 61 Year
  Sex: Female
  Weight: 80 kg

DRUGS (2)
  1. VYTORIN [Suspect]
     Indication: LOW DENSITY LIPOPROTEIN INCREASED
     Route: 048
     Dates: start: 20070501, end: 20090601
  2. VYTORIN [Suspect]
     Indication: NEOPLASM MALIGNANT
     Route: 048
     Dates: start: 20070501, end: 20090601

REACTIONS (1)
  - NASOPHARYNGEAL CANCER [None]
